FAERS Safety Report 16996880 (Version 1)
Quarter: 2019Q4

REPORT INFORMATION
  Report Type: Spontaneous
  Country: US (occurrence: US)
  Receive Date: 20191105
  Receipt Date: 20191105
  Transmission Date: 20200122
  Serious: Yes (Life-Threatening, Other)
  Sender: FDA-Public Use
  Company Number: US-BAYER-2019-198123

PATIENT
  Age: 36 Year
  Sex: Male

DRUGS (1)
  1. ACETYLSALICYLIC ACID (PAIN AND FEVER) [Suspect]
     Active Substance: ASPIRIN
     Dosage: UNK

REACTIONS (5)
  - Overdose [None]
  - Rhabdomyolysis [None]
  - Respiratory failure [None]
  - Hyperthermia [None]
  - Acute kidney injury [None]
